FAERS Safety Report 12668142 (Version 1)
Quarter: 2016Q3

REPORT INFORMATION
  Report Type: Spontaneous
  Country: US (occurrence: US)
  Receive Date: 20160819
  Receipt Date: 20160819
  Transmission Date: 20161109
  Serious: No
  Sender: FDA-Public Use
  Company Number: US-009507513-1608USA005313

PATIENT
  Age: 18 Year
  Sex: Female
  Weight: 73.02 kg

DRUGS (3)
  1. DOCUSATE SODIUM. [Concomitant]
     Active Substance: DOCUSATE SODIUM
     Dosage: 100 MG X 1
  2. IRON (UNSPECIFIED) [Concomitant]
     Active Substance: IRON
  3. NEXPLANON [Suspect]
     Active Substance: ETONOGESTREL
     Indication: CONTRACEPTION
     Dosage: 1 ROD UP TO 3 YEARS, IN THE RIGHT ARM IMPLANT
     Route: 059
     Dates: start: 20151012

REACTIONS (4)
  - Dysmenorrhoea [Unknown]
  - Menorrhagia [Unknown]
  - Headache [Unknown]
  - Menstrual disorder [Unknown]

NARRATIVE: CASE EVENT DATE: 20160727
